FAERS Safety Report 17220187 (Version 1)
Quarter: 2019Q4

REPORT INFORMATION
  Report Type: Spontaneous
  Country: IE (occurrence: IE)
  Receive Date: 20191231
  Receipt Date: 20191231
  Transmission Date: 20200122
  Serious: Yes (Death, Life-Threatening, Hospitalization)
  Sender: FDA-Public Use
  Company Number: NVSC2019IE082061

PATIENT
  Age: 72 Year
  Sex: Female

DRUGS (5)
  1. SIMVASTATIN. [Suspect]
     Active Substance: SIMVASTATIN
     Indication: PRODUCT USED FOR UNKNOWN INDICATION
     Dosage: 20 MG, QD
     Route: 065
  2. GLICLAZIDE [Suspect]
     Active Substance: GLICLAZIDE
     Indication: PRODUCT USED FOR UNKNOWN INDICATION
     Dosage: 160 MG MANE
     Route: 065
  3. GLICLAZIDE [Suspect]
     Active Substance: GLICLAZIDE
     Dosage: 80 MG UNK NOCTE
     Route: 065
  4. METFORMIN [Suspect]
     Active Substance: METFORMIN HYDROCHLORIDE
     Indication: TYPE 2 DIABETES MELLITUS
     Dosage: UNK
     Route: 065
  5. AMLODIPINE [Suspect]
     Active Substance: AMLODIPINE BESYLATE
     Indication: PRODUCT USED FOR UNKNOWN INDICATION
     Dosage: 10 MG, QD
     Route: 065

REACTIONS (6)
  - Gastrointestinal sounds abnormal [Not Recovered/Not Resolved]
  - Blood pressure abnormal [Not Recovered/Not Resolved]
  - Abdominal tenderness [Not Recovered/Not Resolved]
  - Lactic acidosis [Fatal]
  - Cardiac arrest [Unknown]
  - Hypoglycaemia [Unknown]
